FAERS Safety Report 26116609 (Version 1)
Quarter: 2025Q4

REPORT INFORMATION
  Report Type: Spontaneous
  Country: EU (occurrence: EU)
  Receive Date: 20251203
  Receipt Date: 20251203
  Transmission Date: 20260117
  Serious: Yes (Other)
  Sender: MYLAN
  Company Number: EU-MYLANLABS-2025M1102976

PATIENT
  Age: 39 Year
  Sex: Female

DRUGS (56)
  1. DOCETAXEL [Suspect]
     Active Substance: DOCETAXEL
     Indication: HER2 positive breast cancer
     Dosage: 80 MG/MQ DAY1 W3
  2. DOCETAXEL [Suspect]
     Active Substance: DOCETAXEL
     Dosage: 80 MG/MQ DAY1 W3
     Route: 065
  3. DOCETAXEL [Suspect]
     Active Substance: DOCETAXEL
     Dosage: 80 MG/MQ DAY1 W3
     Route: 065
  4. DOCETAXEL [Suspect]
     Active Substance: DOCETAXEL
     Dosage: 80 MG/MQ DAY1 W3
  5. VINORELBINE [Suspect]
     Active Substance: VINORELBINE TARTRATE
     Indication: HER2 positive breast cancer
     Dosage: 30 MG/MQ DAY 1, 8 W3
  6. VINORELBINE [Suspect]
     Active Substance: VINORELBINE TARTRATE
     Indication: Breast cancer metastatic
     Dosage: 30 MG/MQ DAY 1, 8 W3
     Route: 065
  7. VINORELBINE [Suspect]
     Active Substance: VINORELBINE TARTRATE
     Dosage: 30 MG/MQ DAY 1, 8 W3
     Route: 065
  8. VINORELBINE [Suspect]
     Active Substance: VINORELBINE TARTRATE
     Dosage: 30 MG/MQ DAY 1, 8 W3
  9. ONDANSETRON [Suspect]
     Active Substance: ONDANSETRON
     Indication: Nausea
     Dosage: UNK
  10. ONDANSETRON [Suspect]
     Active Substance: ONDANSETRON
     Dosage: UNK
     Route: 065
  11. ONDANSETRON [Suspect]
     Active Substance: ONDANSETRON
     Dosage: UNK
     Route: 065
  12. ONDANSETRON [Suspect]
     Active Substance: ONDANSETRON
     Dosage: UNK
  13. PERTUZUMAB [Suspect]
     Active Substance: PERTUZUMAB
     Indication: HER2 positive breast cancer
     Dosage: 420 MILLIGRAM (DAY 1)
  14. PERTUZUMAB [Suspect]
     Active Substance: PERTUZUMAB
     Dosage: 420 MILLIGRAM (DAY 1)
     Route: 065
  15. PERTUZUMAB [Suspect]
     Active Substance: PERTUZUMAB
     Dosage: 420 MILLIGRAM (DAY 1)
     Route: 065
  16. PERTUZUMAB [Suspect]
     Active Substance: PERTUZUMAB
     Dosage: 420 MILLIGRAM (DAY 1)
  17. TRASTUZUMAB [Suspect]
     Active Substance: TRASTUZUMAB
     Indication: HER2 positive breast cancer
     Dosage: 6 MILLIGRAM/KILOGRAM (DAY 1)
  18. TRASTUZUMAB [Suspect]
     Active Substance: TRASTUZUMAB
     Indication: HER2 positive breast cancer
     Dosage: 6 MILLIGRAM/KILOGRAM (DAY 1)
  19. TRASTUZUMAB [Suspect]
     Active Substance: TRASTUZUMAB
     Indication: Breast cancer metastatic
     Dosage: 6 MILLIGRAM/KILOGRAM (DAY 1)
     Route: 065
  20. TRASTUZUMAB [Suspect]
     Active Substance: TRASTUZUMAB
     Dosage: 6 MILLIGRAM/KILOGRAM (DAY 1)
     Route: 065
  21. TRASTUZUMAB [Suspect]
     Active Substance: TRASTUZUMAB
     Dosage: 6 MG/MQ DAY 1
  22. TRASTUZUMAB [Suspect]
     Active Substance: TRASTUZUMAB
     Dosage: 6 MG/MQ DAY 1
  23. TRASTUZUMAB [Suspect]
     Active Substance: TRASTUZUMAB
     Dosage: 6 MG/MQ DAY 1
     Route: 065
  24. TRASTUZUMAB [Suspect]
     Active Substance: TRASTUZUMAB
     Dosage: 6 MG/MQ DAY 1
     Route: 065
  25. TRASTUZUMAB [Suspect]
     Active Substance: TRASTUZUMAB
     Dosage: 6 MG/MQ DAY 1
  26. TRASTUZUMAB [Suspect]
     Active Substance: TRASTUZUMAB
     Dosage: 6 MG/MQ DAY 1
  27. TRASTUZUMAB [Suspect]
     Active Substance: TRASTUZUMAB
     Dosage: 6 MG/MQ DAY 1
     Route: 065
  28. TRASTUZUMAB [Suspect]
     Active Substance: TRASTUZUMAB
     Dosage: 6 MG/MQ DAY 1
     Route: 065
  29. TRASTUZUMAB [Suspect]
     Active Substance: TRASTUZUMAB
     Dosage: UNK (3?WEEKLY 6?MG/MQ DAY?1 W3)
  30. TRASTUZUMAB [Suspect]
     Active Substance: TRASTUZUMAB
     Dosage: UNK (3?WEEKLY 6?MG/MQ DAY?1 W3)
  31. TRASTUZUMAB [Suspect]
     Active Substance: TRASTUZUMAB
     Dosage: UNK (3?WEEKLY 6?MG/MQ DAY?1 W3)
     Route: 065
  32. TRASTUZUMAB [Suspect]
     Active Substance: TRASTUZUMAB
     Dosage: UNK (3?WEEKLY 6?MG/MQ DAY?1 W3)
     Route: 065
  33. TRASTUZUMAB [Suspect]
     Active Substance: TRASTUZUMAB
     Dosage: 6 MILLIGRAM/KILOGRAM (W3)
  34. TRASTUZUMAB [Suspect]
     Active Substance: TRASTUZUMAB
     Dosage: 6 MILLIGRAM/KILOGRAM (W3)
     Route: 065
  35. TRASTUZUMAB [Suspect]
     Active Substance: TRASTUZUMAB
     Dosage: 6 MILLIGRAM/KILOGRAM (W3)
  36. TRASTUZUMAB [Suspect]
     Active Substance: TRASTUZUMAB
     Dosage: 6 MILLIGRAM/KILOGRAM (W3)
     Route: 065
  37. ADO-TRASTUZUMAB EMTANSINE [Suspect]
     Active Substance: ADO-TRASTUZUMAB EMTANSINE
     Indication: HER2 positive breast cancer
     Dosage: 3.6 MILLIGRAM/KILOGRAM (DAY 1 W3)
  38. ADO-TRASTUZUMAB EMTANSINE [Suspect]
     Active Substance: ADO-TRASTUZUMAB EMTANSINE
     Indication: HER2 positive breast cancer
     Dosage: 3.6 MILLIGRAM/KILOGRAM (DAY 1 W3)
  39. ADO-TRASTUZUMAB EMTANSINE [Suspect]
     Active Substance: ADO-TRASTUZUMAB EMTANSINE
     Indication: Breast cancer metastatic
     Dosage: 3.6 MILLIGRAM/KILOGRAM (DAY 1 W3)
     Route: 065
  40. ADO-TRASTUZUMAB EMTANSINE [Suspect]
     Active Substance: ADO-TRASTUZUMAB EMTANSINE
     Dosage: 3.6 MILLIGRAM/KILOGRAM (DAY 1 W3)
     Route: 065
  41. ADO-TRASTUZUMAB EMTANSINE [Suspect]
     Active Substance: ADO-TRASTUZUMAB EMTANSINE
     Dosage: 3.6 MILLIGRAM/KILOGRAM (DAY 1 W3)
  42. ADO-TRASTUZUMAB EMTANSINE [Suspect]
     Active Substance: ADO-TRASTUZUMAB EMTANSINE
     Dosage: 3.6 MILLIGRAM/KILOGRAM (DAY 1 W3)
  43. ADO-TRASTUZUMAB EMTANSINE [Suspect]
     Active Substance: ADO-TRASTUZUMAB EMTANSINE
     Dosage: 3.6 MILLIGRAM/KILOGRAM (DAY 1 W3)
     Route: 065
  44. ADO-TRASTUZUMAB EMTANSINE [Suspect]
     Active Substance: ADO-TRASTUZUMAB EMTANSINE
     Dosage: 3.6 MILLIGRAM/KILOGRAM (DAY 1 W3)
     Route: 065
  45. ZENOCUTUZUMAB [Suspect]
     Active Substance: ZENOCUTUZUMAB
     Indication: HER2 positive breast cancer
     Dosage: 750 MILLIGRAM
  46. ZENOCUTUZUMAB [Suspect]
     Active Substance: ZENOCUTUZUMAB
     Indication: Breast cancer metastatic
     Dosage: 750 MILLIGRAM
     Route: 065
  47. ZENOCUTUZUMAB [Suspect]
     Active Substance: ZENOCUTUZUMAB
     Dosage: 750 MILLIGRAM
     Route: 065
  48. ZENOCUTUZUMAB [Suspect]
     Active Substance: ZENOCUTUZUMAB
     Dosage: 750 MILLIGRAM
  49. APREPITANT [Suspect]
     Active Substance: APREPITANT
     Indication: Nausea
     Dosage: UNK
  50. APREPITANT [Suspect]
     Active Substance: APREPITANT
     Dosage: UNK
     Route: 065
  51. APREPITANT [Suspect]
     Active Substance: APREPITANT
     Dosage: UNK
     Route: 065
  52. APREPITANT [Suspect]
     Active Substance: APREPITANT
     Dosage: UNK
  53. CHLORPROMAZINE [Suspect]
     Active Substance: CHLORPROMAZINE
     Indication: Nausea
     Dosage: UNK
  54. CHLORPROMAZINE [Suspect]
     Active Substance: CHLORPROMAZINE
     Dosage: UNK
     Route: 065
  55. CHLORPROMAZINE [Suspect]
     Active Substance: CHLORPROMAZINE
     Dosage: UNK
     Route: 065
  56. CHLORPROMAZINE [Suspect]
     Active Substance: CHLORPROMAZINE
     Dosage: UNK

REACTIONS (2)
  - Drug ineffective [Unknown]
  - Disease progression [Unknown]
